FAERS Safety Report 15888223 (Version 1)
Quarter: 2019Q1

REPORT INFORMATION
  Report Type: Report from Study
  Country: US (occurrence: US)
  Receive Date: 20190130
  Receipt Date: 20190130
  Transmission Date: 20190417
  Serious: Yes (Death, Other)
  Sender: FDA-Public Use
  Company Number: US-ROCHE-1876872

PATIENT
  Sex: Male

DRUGS (2)
  1. ALTEPLASE. [Suspect]
     Active Substance: ALTEPLASE
     Dosage: LEFT FRONTAL LOCATION
     Route: 065
     Dates: start: 20161121, end: 20161126
  2. ALTEPLASE. [Suspect]
     Active Substance: ALTEPLASE
     Indication: CEREBROVASCULAR ACCIDENT
     Dosage: RIGHT LATERAL LOCATION
     Route: 050
     Dates: start: 20161120, end: 20161129

REACTIONS (3)
  - Large intestine perforation [Fatal]
  - Cerebral ischaemia [Recovered/Resolved]
  - Haemorrhage intracranial [Recovered/Resolved]

NARRATIVE: CASE EVENT DATE: 20161122
